FAERS Safety Report 8468789 (Version 13)
Quarter: 2014Q2

REPORT INFORMATION
  Report Type: Spontaneous
  Country: US (occurrence: US)
  Receive Date: 20120321
  Receipt Date: 20140422
  Transmission Date: 20141212
  Serious: Yes (Hospitalization, Other)
  Sender: FDA-Public Use
  Company Number: US-ASTRAZENECA-2011SE32265

PATIENT
  Age: 63 Year
  Sex: Female
  Weight: 86.2 kg

DRUGS (70)
  1. NEXIUM [Suspect]
     Indication: GASTROOESOPHAGEAL REFLUX DISEASE
     Dosage: TOOK NEXIUM FOR SEVERAL YEARS
     Route: 048
  2. NEXIUM [Suspect]
     Indication: GASTROOESOPHAGEAL REFLUX DISEASE
     Route: 048
     Dates: start: 2001, end: 201105
  3. NEXIUM [Suspect]
     Indication: GASTROOESOPHAGEAL REFLUX DISEASE
     Route: 048
     Dates: start: 2002, end: 2011
  4. NEXIUM [Suspect]
     Indication: GASTROOESOPHAGEAL REFLUX DISEASE
     Route: 048
     Dates: start: 20030701
  5. NEXIUM [Suspect]
     Indication: GASTROOESOPHAGEAL REFLUX DISEASE
     Route: 048
     Dates: start: 20031202
  6. NEXIUM [Suspect]
     Indication: GASTROOESOPHAGEAL REFLUX DISEASE
     Route: 048
     Dates: start: 20060612
  7. NEXIUM [Suspect]
     Indication: GASTROOESOPHAGEAL REFLUX DISEASE
     Route: 048
     Dates: start: 20080115
  8. NEXIUM [Suspect]
     Indication: GASTROOESOPHAGEAL REFLUX DISEASE
     Route: 048
     Dates: start: 20110304
  9. PEPCID [Concomitant]
     Indication: GASTROOESOPHAGEAL REFLUX DISEASE
     Dates: start: 201105
  10. BENICAR HCT [Concomitant]
     Indication: HYPERTENSION
     Dosage: 20/12.5 DAILY
     Dates: start: 20060127
  11. BENICAR HCT [Concomitant]
     Indication: HYPERTENSION
     Dates: start: 20080115
  12. BENICAR HCT [Concomitant]
     Indication: HYPERTENSION
     Dates: start: 201110
  13. FLORINAL/FIORINAL [Concomitant]
     Indication: HYPERTENSION
     Dates: start: 20060127
  14. FLORINAL/FIORINAL [Concomitant]
     Indication: HEADACHE
     Dates: start: 20060127
  15. FLORINAL/FIORINAL [Concomitant]
     Indication: HYPERTENSION
     Dates: start: 20080115
  16. FLORINAL/FIORINAL [Concomitant]
     Indication: HEADACHE
     Dates: start: 20080115
  17. LOVASTATIN [Concomitant]
     Indication: BLOOD CHOLESTEROL INCREASED
     Dates: start: 20110208
  18. RECLAST [Concomitant]
     Indication: OSTEOPOROSIS
  19. DAPSONE [Concomitant]
     Indication: VASCULITIS
     Dates: start: 201110
  20. PREVENTATIVE MAZALT [Concomitant]
     Indication: MIGRAINE
  21. PROPRANOLOL/PROPRANOLOL HCT [Concomitant]
     Indication: MIGRAINE
     Dates: start: 20050101
  22. PROPRANOLOL/PROPRANOLOL HCT [Concomitant]
     Indication: MIGRAINE
     Dates: start: 20031202
  23. PROPRANOLOL/PROPRANOLOL HCT [Concomitant]
     Indication: MIGRAINE
     Dates: start: 20060516
  24. PROPRANOLOL/PROPRANOLOL HCT [Concomitant]
     Indication: MIGRAINE
     Dates: start: 20080115
  25. PROPRANOLOL/PROPRANOLOL HCT [Concomitant]
     Indication: MIGRAINE
     Dates: start: 20110209
  26. CARBEMAZEPIN [Concomitant]
     Indication: TRIGEMINAL NEURALGIA
  27. ENABLEX [Concomitant]
     Indication: URINARY INCONTINENCE
     Dates: start: 20060127
  28. ENABLEX [Concomitant]
     Indication: URINARY INCONTINENCE
     Dates: start: 20080115
  29. ENABLEX [Concomitant]
     Indication: URINARY INCONTINENCE
     Dates: start: 201110
  30. LEXAPRO [Concomitant]
     Indication: DEPRESSION
     Dates: start: 20110208
  31. VIT D [Concomitant]
     Indication: OSTEOPOROSIS
  32. CALCIUM [Concomitant]
     Indication: OSTEOPOROSIS
  33. LIPITOR [Concomitant]
     Indication: BLOOD CHOLESTEROL
     Dates: start: 20031202
  34. LIPITOR [Concomitant]
     Indication: BLOOD CHOLESTEROL
     Dates: start: 20050101
  35. LOTREL [Concomitant]
     Indication: HYPERTENSION
     Dosage: 10/20 MG
     Dates: start: 20050101
  36. DITROPAN XL [Concomitant]
     Indication: POLLAKIURIA
     Dates: start: 20050101
  37. DITROPAN XL [Concomitant]
     Indication: POLLAKIURIA
     Dates: start: 20031202
  38. ALLEGRA D [Concomitant]
     Indication: RHINITIS ALLERGIC
     Dates: start: 20050101
  39. ALLEGRA D [Concomitant]
     Indication: RHINITIS ALLERGIC
     Dates: start: 20031202
  40. MAXALT [Concomitant]
     Indication: MIGRAINE
     Dates: start: 20050101
  41. MAXALT [Concomitant]
     Indication: MIGRAINE
     Dosage: 10 MG PRN
     Dates: start: 20060127
  42. MAXALT [Concomitant]
     Indication: MIGRAINE
     Dates: start: 20080115
  43. BENTYL [Concomitant]
     Indication: IRRITABLE BOWEL SYNDROME
     Dates: start: 20050101
  44. BENTYL [Concomitant]
     Indication: IRRITABLE BOWEL SYNDROME
     Dosage: 20 MG PRN
     Dates: start: 20060127
  45. PERIOSTAT [Concomitant]
     Dates: start: 20050101
  46. ACTONEL [Concomitant]
     Dates: start: 20050101
  47. ACTONEL [Concomitant]
     Dosage: 35 MG WEEKLY
     Dates: start: 20060127
  48. ACTONEL [Concomitant]
     Dosage: 35 MG PRN T PO Q SATURDAY AM
     Route: 048
  49. CRESTOR [Concomitant]
     Dates: start: 20060127
  50. ALTACE [Concomitant]
     Dates: start: 20031202
  51. WELLBUTRIN SR [Concomitant]
     Dates: start: 20050101
  52. BEXTRA [Concomitant]
     Dates: start: 20031202
  53. NITROQUICK [Concomitant]
     Route: 060
     Dates: start: 20031202
  54. SYNTHROID [Concomitant]
     Indication: HYPOTHYROIDISM
     Dates: start: 20100921
  55. SYNTHROID [Concomitant]
     Indication: HYPOTHYROIDISM
     Dates: start: 20111007
  56. IMURAN [Concomitant]
     Indication: VASCULITIS
     Dates: start: 201110
  57. HYDROCHLOROTHIAZIDE [Concomitant]
     Dates: start: 20060619
  58. HYDROCHLOROTHIAZIDE [Concomitant]
     Dates: start: 20080115
  59. CELEBREX [Concomitant]
     Dates: start: 20060714
  60. OXYCOD/APAP [Concomitant]
     Dosage: 10-325 MG
     Dates: start: 20110321
  61. SMZ/TMP DS [Concomitant]
     Dosage: 800-160 MG
     Dates: start: 20110321
  62. DOXYCYCLINE [Concomitant]
     Dosage: 800-160 MG
     Dates: start: 20110321
  63. MESTINON [Concomitant]
     Dates: start: 20080115
  64. CLARITIN [Concomitant]
     Dates: start: 20080115
  65. FLONASE [Concomitant]
     Dates: start: 20080115
  66. ESTROGEN [Concomitant]
     Indication: HORMONE REPLACEMENT THERAPY
     Dates: start: 2000
  67. PRILOSEC [Concomitant]
     Dates: start: 20000323
  68. MEDROXYPROGESTERONE [Concomitant]
     Dates: start: 20000614
  69. ESTRADIOL [Concomitant]
     Dates: start: 20010622
  70. PREDNISONE [Concomitant]
     Dates: start: 20050523

REACTIONS (25)
  - Radius fracture [Unknown]
  - Wrist fracture [Unknown]
  - Lower limb fracture [Unknown]
  - Upper limb fracture [Unknown]
  - Spinal osteoarthritis [Unknown]
  - Spinal cord compression [Unknown]
  - Spinal column stenosis [Unknown]
  - Myelopathy [Unknown]
  - Tibia fracture [Unknown]
  - Forearm fracture [Unknown]
  - Femur fracture [Unknown]
  - Ulna fracture [Unknown]
  - Fall [Unknown]
  - Cervical vertebral fracture [Unknown]
  - Osteoporosis [Unknown]
  - Hypothyroidism [Unknown]
  - Oesophageal spasm [Unknown]
  - Gastric ulcer [Unknown]
  - Gastritis [Unknown]
  - Rib fracture [Unknown]
  - Fracture [Unknown]
  - Vitamin D deficiency [Unknown]
  - Osteopenia [Unknown]
  - Gastrooesophageal reflux disease [Unknown]
  - Depression [Unknown]
